FAERS Safety Report 14958236 (Version 1)
Quarter: 2018Q2

REPORT INFORMATION
  Report Type: Spontaneous
  Country: US (occurrence: US)
  Receive Date: 20180531
  Receipt Date: 20180531
  Transmission Date: 20180711
  Serious: No
  Sender: FDA-Public Use
  Company Number: US-MYLANLABS-2018M1030746

PATIENT
  Sex: Female
  Weight: 68 kg

DRUGS (1)
  1. ESTRADIOL. [Suspect]
     Active Substance: ESTRADIOL
     Indication: OSTEOPOROSIS
     Dosage: 5 MG, UNK
     Route: 062
     Dates: start: 20180101

REACTIONS (4)
  - Hypersensitivity [Unknown]
  - Application site pruritus [Unknown]
  - Off label use [Unknown]
  - Application site erythema [Unknown]
